FAERS Safety Report 7872994-3 (Version None)
Quarter: 2011Q4

REPORT INFORMATION
  Report Type: 
  Country: None (occurrence: None)
  Receive Date: 20111003
  Receipt Date: 20100823
  Transmission Date: 20120403
  Serious: Yes (Other)
  Sender: FDA-Public Use
  Company Number: 246305USA

PATIENT
  Sex: Female

DRUGS (9)
  1. MEDROXYPROGESTERONE [Suspect]
  2. ESTROGENS CONJUGATED [Suspect]
  3. CONJUGATED ESTROGENS [Concomitant]
  4. ESTRADIOL [Suspect]
  5. MEDROXYPROGESTERONE ACETATE [Suspect]
  6. ESTROPIPATE [Suspect]
  7. ESTRADIOL [Suspect]
  8. ESTROGENS ESTERIFIED [Suspect]
  9. MEDROXYPROGESTERONE ACETATE [Suspect]

REACTIONS (1)
  - BREAST CANCER [None]
